FAERS Safety Report 20509232 (Version 3)
Quarter: 2022Q1

REPORT INFORMATION
  Report Type: Report from Study
  Country: ES (occurrence: ES)
  Receive Date: 20220223
  Receipt Date: 20220311
  Transmission Date: 20220423
  Serious: No
  Sender: FDA-Public Use
  Company Number: ES-CELGENE-ESP-20220205660

PATIENT
  Age: 29 Year
  Sex: Male

DRUGS (6)
  1. OZANIMOD [Suspect]
     Active Substance: OZANIMOD
     Indication: Relapsing-remitting multiple sclerosis
     Route: 048
  2. OZANIMOD [Suspect]
     Active Substance: OZANIMOD
     Indication: Relapsing-remitting multiple sclerosis
     Route: 048
  3. OZANIMOD [Suspect]
     Active Substance: OZANIMOD
     Indication: Relapsing-remitting multiple sclerosis
     Route: 048
     Dates: end: 202107
  4. OZANIMOD [Suspect]
     Active Substance: OZANIMOD
     Dosage: .92 MILLIGRAM
     Route: 048
     Dates: start: 20150126, end: 20210716
  5. CLADRIBINE [Concomitant]
     Active Substance: CLADRIBINE
     Indication: Multiple sclerosis relapse
     Route: 065
     Dates: start: 202109
  6. CLADRIBINE [Concomitant]
     Active Substance: CLADRIBINE
     Route: 048

REACTIONS (1)
  - Multiple sclerosis relapse [Unknown]
